FAERS Safety Report 5794034-2 (Version None)
Quarter: 2008Q2

REPORT INFORMATION
  Report Type: 
  Country: None (occurrence: None)
  Receive Date: 20080627
  Receipt Date: 20080617
  Transmission Date: 20081010
  Serious: Yes (Other)
  Sender: FDA-Public Use
  Company Number: US-PFIZER INC-2008023591

PATIENT
  Sex: Female
  Weight: 92.1 kg

DRUGS (5)
  1. LYRICA [Suspect]
     Indication: FIBROMYALGIA
     Dates: start: 20070101, end: 20080101
  2. NAPROSYN [Concomitant]
  3. CYMBALTA [Concomitant]
  4. LEVOTHYROXINE SODIUM [Concomitant]
  5. TOPROL-XL [Concomitant]

REACTIONS (4)
  - DRUG INEFFECTIVE [None]
  - PAIN [None]
  - SWELLING [None]
  - WEIGHT INCREASED [None]
